FAERS Safety Report 23623746 (Version 1)
Quarter: 2024Q1

REPORT INFORMATION
  Report Type: Spontaneous
  Country: US (occurrence: US)
  Receive Date: 20240312
  Receipt Date: 20240312
  Transmission Date: 20240409
  Serious: Yes (Other)
  Sender: FDA-Public Use
  Company Number: US-FreseniusKabi-FK202403554

PATIENT
  Age: 7 Month

DRUGS (1)
  1. OMEGAVEN [Suspect]
     Active Substance: FISH OIL
     Indication: Parenteral nutrition
     Dosage: FORM OF ADMIN. SOLUTION FOR INFUSION

REACTIONS (3)
  - Parenteral nutrition associated liver disease [Unknown]
  - Condition aggravated [Unknown]
  - Off label use [Unknown]
